FAERS Safety Report 7050389-2 (Version None)
Quarter: 2010Q4

REPORT INFORMATION
  Report Type: 
  Country: None (occurrence: None)
  Receive Date: 20101018
  Receipt Date: 20101012
  Transmission Date: 20110411
  Serious: Yes (Hospitalization)
  Sender: FDA-Public Use
  Company Number: FR-CEPHALON-2010005377

PATIENT
  Age: 41 Year
  Sex: Female

DRUGS (3)
  1. MODAFINIL [Suspect]
     Indication: NARCOLEPSY
     Route: 048
     Dates: start: 20030101
  2. RIVOTRIL [Concomitant]
  3. PANTOPRAZOLE [Concomitant]

REACTIONS (6)
  - ARTHRALGIA [None]
  - HEADACHE [None]
  - INFLAMMATION [None]
  - LEUKOCYTOSIS [None]
  - MICROCYTIC ANAEMIA [None]
  - PYREXIA [None]
